FAERS Safety Report 10275670 (Version 1)
Quarter: 2014Q3

REPORT INFORMATION
  Report Type: Spontaneous
  Country: US (occurrence: None)
  Receive Date: 20140701
  Receipt Date: 20140701
  Transmission Date: 20150326
  Serious: Yes (Hospitalization)
  Sender: FDA-Public Use
  Company Number: None

PATIENT
  Age: 86 Year
  Sex: Male
  Weight: 75 kg

DRUGS (8)
  1. POTASSIUM CHLORIDE. [Concomitant]
     Active Substance: POTASSIUM CHLORIDE
  2. ROSUVASTATIN [Concomitant]
     Active Substance: ROSUVASTATIN
  3. DONEPEZIL [Concomitant]
     Active Substance: DONEPEZIL
  4. FUROSEMIDE. [Concomitant]
     Active Substance: FUROSEMIDE
  5. CLOPIDOGREL [Concomitant]
     Active Substance: CLOPIDOGREL BISULFATE
  6. TIOTROPIUM [Concomitant]
     Active Substance: TIOTROPIUM
  7. RIVAROXABAN 15 MG JANSSEN [Suspect]
     Active Substance: RIVAROXABAN
     Indication: DEEP VEIN THROMBOSIS
     Dosage: ONE TABLET
     Route: 048
     Dates: start: 20131221, end: 20131223
  8. RIVAROXABAN 15 MG JANSSEN [Suspect]
     Active Substance: RIVAROXABAN
     Dosage: ONE TABLET
     Route: 048
     Dates: start: 20131221, end: 20131223

REACTIONS (1)
  - Gastrointestinal haemorrhage [None]

NARRATIVE: CASE EVENT DATE: 20131223
